FAERS Safety Report 26188291 (Version 1)
Quarter: 2025Q4

REPORT INFORMATION
  Report Type: Report from Study
  Country: AE (occurrence: AE)
  Receive Date: 20251222
  Receipt Date: 20251222
  Transmission Date: 20260117
  Serious: Yes (Death, Hospitalization, Other)
  Sender: SANOFI AVENTIS
  Company Number: AE-SA-2025SA312582

PATIENT
  Age: 87 Year
  Sex: Male

DRUGS (1)
  1. DUPILUMAB [Suspect]
     Active Substance: DUPILUMAB
     Indication: Dermatitis atopic
     Dosage: 300 MG, QOW
     Route: 058
     Dates: start: 20231012, end: 202512

REACTIONS (9)
  - Death [Fatal]
  - Lower respiratory tract infection [Not Recovered/Not Resolved]
  - Pyrexia [Unknown]
  - Loss of consciousness [Unknown]
  - Hospitalisation [Unknown]
  - Cough [Unknown]
  - Increased viscosity of upper respiratory secretion [Unknown]
  - Dyspnoea [Recovered/Resolved]
  - Oxygen saturation abnormal [Unknown]

NARRATIVE: CASE EVENT DATE: 20251210
